FAERS Safety Report 21853982 (Version 2)
Quarter: 2023Q2

REPORT INFORMATION
  Report Type: Report from Study
  Country: CO (occurrence: CO)
  Receive Date: 20230112
  Receipt Date: 20230628
  Transmission Date: 20230722
  Serious: Yes (Hospitalization)
  Sender: FDA-Public Use
  Company Number: CO-JNJFOC-20230110832

PATIENT
  Age: 81 Year
  Sex: Female
  Weight: 72 kg

DRUGS (5)
  1. SIMPONI [Suspect]
     Active Substance: GOLIMUMAB
     Indication: Rheumatoid arthritis
     Route: 058
     Dates: start: 20150106, end: 20221124
  2. APIXABAN [Concomitant]
     Active Substance: APIXABAN
  3. CANDESARTAN [Concomitant]
     Active Substance: CANDESARTAN
  4. FUROSEMIDE [Concomitant]
     Active Substance: FUROSEMIDE
  5. LEVOTHYROXINE [Concomitant]
     Active Substance: LEVOTHYROXINE

REACTIONS (5)
  - Pneumonia [Recovering/Resolving]
  - Diabetes mellitus [Recovering/Resolving]
  - Pulmonary oedema [Recovering/Resolving]
  - Fluid retention [Recovering/Resolving]
  - Asphyxia [Recovering/Resolving]

NARRATIVE: CASE EVENT DATE: 20221222
